FAERS Safety Report 4748216-9 (Version None)
Quarter: 2005Q3

REPORT INFORMATION
  Report Type: 
  Country: None (occurrence: None)
  Receive Date: 20050818
  Receipt Date: 20050809
  Transmission Date: 20060218
  Serious: Yes (Other)
  Sender: FDA-Public Use
  Company Number: PHBS2005JP11632

PATIENT
  Sex: Male

DRUGS (2)
  1. TEGRETOL [Suspect]
     Indication: NEUROPATHY PERIPHERAL
     Dates: start: 20050601
  2. CYANOCOBALAMIN [Concomitant]

REACTIONS (1)
  - DYSGEUSIA [None]
